FAERS Safety Report 10710669 (Version 1)
Quarter: 2015Q1

REPORT INFORMATION
  Report Type: Spontaneous
  Country: FR (occurrence: FR)
  Receive Date: 20150114
  Receipt Date: 20150114
  Transmission Date: 20150721
  Serious: Yes (Hospitalization, Disabling)
  Sender: FDA-Public Use
  Company Number: FR-ASTRAZENECA-2015SE02221

PATIENT
  Age: 3366 Week
  Sex: Female

DRUGS (4)
  1. FENTANYL. [Suspect]
     Active Substance: FENTANYL
     Indication: LIMB OPERATION
     Dosage: ONCE
     Route: 042
     Dates: start: 20061115
  2. DIPRIVAN [Suspect]
     Active Substance: PROPOFOL
     Indication: LIMB OPERATION
     Route: 042
     Dates: start: 20061115
  3. KETAMINE [Suspect]
     Active Substance: KETAMINE
     Indication: LIMB OPERATION
     Route: 042
     Dates: start: 20061115
  4. ISOFLURANE. [Suspect]
     Active Substance: ISOFLURANE
     Indication: LIMB OPERATION
     Route: 055
     Dates: start: 20061115

REACTIONS (1)
  - Subacute combined cord degeneration [Not Recovered/Not Resolved]

NARRATIVE: CASE EVENT DATE: 20061115
